FAERS Safety Report 12903224 (Version 1)
Quarter: 2016Q4

REPORT INFORMATION
  Report Type: Spontaneous
  Country: US (occurrence: US)
  Receive Date: 20161102
  Receipt Date: 20161102
  Transmission Date: 20170207
  Serious: No
  Sender: FDA-Public Use
  Company Number: US-BAYER-2016-209546

PATIENT
  Age: 34 Year
  Sex: Male

DRUGS (1)
  1. ULTRAVIST [Suspect]
     Active Substance: IOPROMIDE
     Indication: ABDOMINAL PAIN LOWER
     Dosage: 300 MG, ONCE
     Route: 042
     Dates: start: 20161025, end: 20161025

REACTIONS (1)
  - Vomiting [None]

NARRATIVE: CASE EVENT DATE: 20161025
